FAERS Safety Report 19463566 (Version 1)
Quarter: 2021Q2

REPORT INFORMATION
  Report Type: Spontaneous
  Country: US (occurrence: US)
  Receive Date: 20210625
  Receipt Date: 20210625
  Transmission Date: 20210717
  Serious: Yes (Other)
  Sender: FDA-Public Use
  Company Number: US-REGENERON PHARMACEUTICALS, INC.-2021-60964

PATIENT

DRUGS (3)
  1. EYLEA [Suspect]
     Active Substance: AFLIBERCEPT
     Indication: MACULAR OEDEMA
     Dosage: EVERY 2 WEEKS ALTERNATING BETWEEN LEFT EYE AND RIGHT EYE
     Route: 031
  2. EYLEA [Suspect]
     Active Substance: AFLIBERCEPT
     Dosage: EVERY 2 WEEKS, RIGHT EYE
     Route: 031
     Dates: start: 202106, end: 202106
  3. EYLEA [Suspect]
     Active Substance: AFLIBERCEPT
     Dosage: EVERY 2 WEEKS, RIGHT EYE
     Route: 031
     Dates: start: 20210621, end: 20210621

REACTIONS (8)
  - Erythema [Unknown]
  - Ocular hyperaemia [Not Recovered/Not Resolved]
  - Periorbital swelling [Unknown]
  - Periorbital inflammation [Unknown]
  - Erythema of eyelid [Unknown]
  - Eye pruritus [Not Recovered/Not Resolved]
  - Eye swelling [Unknown]
  - Swelling of eyelid [Unknown]
